FAERS Safety Report 7888703-8 (Version None)
Quarter: 2011Q4

REPORT INFORMATION
  Report Type: 
  Country: None (occurrence: None)
  Receive Date: 20111101
  Receipt Date: 20111025
  Transmission Date: 20120403
  Serious: Yes (Hospitalization)
  Sender: FDA-Public Use
  Company Number: 2011SP050712

PATIENT
  Age: 1 Year
  Sex: Male
  Weight: 10.9 kg

DRUGS (6)
  1. SEVOFLURANE [Suspect]
     Indication: LENTICULAR OPERATION
     Dosage: ;INH
     Route: 055
     Dates: start: 20110315, end: 20110315
  2. VAGOSTIGMIN (NEOSTIGMINE BROMIDE) [Suspect]
     Indication: ANAESTHESIA REVERSAL
     Dosage: 0.1 MG;  ;IV
     Route: 042
     Dates: start: 20110315, end: 20110315
  3. FOSMICIN (FOSFOMYCIN CALCIUM) [Suspect]
     Indication: LENTICULAR OPERATION
     Dosage: 0.5 GM;  ;INDRP
     Route: 041
     Dates: start: 20110315, end: 20110315
  4. NITROUS OXIDE W/ OXYGEN [Suspect]
     Indication: LENTICULAR OPERATION
     Dosage: ;INH
     Route: 055
     Dates: start: 20110315, end: 20110315
  5. DECADRON [Suspect]
     Indication: LENTICULAR OPERATION
     Dosage: 0.4 ML;   ; OPH
     Route: 047
     Dates: start: 20110315, end: 20110315
  6. VECURONIUM BROMIDE [Suspect]
     Indication: NEUROMUSCULAR BLOCKADE
     Dosage: 1 MG;  ; IV
     Route: 042
     Dates: start: 20110315, end: 20110315

REACTIONS (1)
  - PULMONARY OEDEMA [None]
